FAERS Safety Report 9843080 (Version 1)
Quarter: 2014Q1

REPORT INFORMATION
  Report Type: Spontaneous
  Country: FR (occurrence: FR)
  Receive Date: 20140124
  Receipt Date: 20140124
  Transmission Date: 20141002
  Serious: Yes (Life-Threatening, Hospitalization)
  Sender: FDA-Public Use
  Company Number: FR-ACTAVIS-2013-24682

PATIENT
  Age: 62 Year
  Sex: Female

DRUGS (3)
  1. PARACETAMOL [Suspect]
     Indication: PRODUCT USED FOR UNKNOWN INDICATION
     Dosage: 4 BOXES
     Route: 048
     Dates: start: 20070707, end: 20070707
  2. ZOLPIDEM (UNKNOWN) [Suspect]
     Indication: PRODUCT USED FOR UNKNOWN INDICATION
     Dosage: 1 BOX
     Route: 048
  3. STILNOX [Suspect]
     Indication: PRODUCT USED FOR UNKNOWN INDICATION
     Dosage: 4 BOXES
     Route: 048

REACTIONS (3)
  - Hepatitis fulminant [Recovering/Resolving]
  - Hepatic failure [Recovering/Resolving]
  - Cell death [Recovering/Resolving]
